FAERS Safety Report 4690520-7 (Version None)
Quarter: 2005Q2

REPORT INFORMATION
  Report Type: 
  Country: None (occurrence: None)
  Receive Date: 20050615
  Receipt Date: 20050208
  Transmission Date: 20051028
  Serious: Yes (Hospitalization)
  Sender: FDA-Public Use
  Company Number: US-MERCK-0502USA00766

PATIENT
  Age: 72 Year
  Sex: Female
  Weight: 73 kg

DRUGS (1)
  1. VIOXX [Suspect]
     Indication: ARTHRITIS
     Route: 048
     Dates: start: 20030701, end: 20040901

REACTIONS (4)
  - CEREBRAL ISCHAEMIA [None]
  - HYPERCHOLESTEROLAEMIA [None]
  - ISCHAEMIA [None]
  - TRANSIENT ISCHAEMIC ATTACK [None]
